FAERS Safety Report 6461739-X (Version None)
Quarter: 2009Q4

REPORT INFORMATION
  Report Type: 
  Country: None (occurrence: None)
  Receive Date: 20091130
  Receipt Date: 20091120
  Transmission Date: 20100525
  Serious: Yes (Hospitalization, Other)
  Sender: FDA-Public Use
  Company Number: GB-BRISTOL-MYERS SQUIBB COMPANY-13430194

PATIENT
  Age: 77 Year
  Sex: Female
  Weight: 58 kg

DRUGS (6)
  1. PLACEBO [Suspect]
     Indication: HYPERTENSION
     Route: 048
     Dates: start: 20041201, end: 20060627
  2. CLOPIDOGREL BISULFATE [Suspect]
     Indication: PROPHYLAXIS
     Route: 048
     Dates: start: 20041204
  3. ASPIRIN [Suspect]
     Indication: PROPHYLAXIS
     Route: 048
     Dates: start: 20041204
  4. WARFARIN SODIUM [Concomitant]
     Dates: end: 20060627
  5. ENALAPRIL MALEATE [Concomitant]
     Dates: end: 20060627
  6. CO-CODAMOL [Concomitant]
     Dates: end: 20060627

REACTIONS (3)
  - INTERNATIONAL NORMALISED RATIO INCREASED [None]
  - RENAL FAILURE ACUTE [None]
  - RENAL FAILURE CHRONIC [None]
